FAERS Safety Report 13270430 (Version 2)
Quarter: 2017Q3

REPORT INFORMATION
  Report Type: Spontaneous
  Country: CA (occurrence: CA)
  Receive Date: 20170224
  Receipt Date: 20170703
  Transmission Date: 20171127
  Serious: Yes (Death, Hospitalization)
  Sender: FDA-Public Use
  Company Number: CA-ACTELION-A-NJ2016-140351

PATIENT
  Age: 50 Year
  Sex: Female

DRUGS (15)
  1. HYDROXYZINE [Concomitant]
     Active Substance: HYDROXYZINE HYDROCHLORIDE
  2. OXYCODONE [Concomitant]
     Active Substance: OXYCODONE
  3. CARIPUL [Suspect]
     Active Substance: EPOPROSTENOL
     Indication: PULMONARY ARTERIAL HYPERTENSION
     Dosage: 72 NG/KG, PER MIN
     Route: 042
     Dates: start: 20140909
  4. OXYNEO [Concomitant]
     Active Substance: OXYCODONE
  5. VITAMIN D [Concomitant]
     Active Substance: CHOLECALCIFEROL
  6. COUMADIN [Concomitant]
     Active Substance: WARFARIN SODIUM
  7. ZOPLICONE [Concomitant]
     Active Substance: ZOPICLONE
  8. OPSUMIT [Suspect]
     Active Substance: MACITENTAN
     Indication: PULMONARY ARTERIAL HYPERTENSION
     Dosage: 10 MG, UNK
     Route: 048
     Dates: start: 20151211
  9. REVATIO [Concomitant]
     Active Substance: SILDENAFIL CITRATE
  10. LASIX [Concomitant]
     Active Substance: FUROSEMIDE
  11. PANTOLOC [Concomitant]
     Active Substance: PANTOPRAZOLE SODIUM
  12. TRAZODONE [Concomitant]
     Active Substance: TRAZODONE HYDROCHLORIDE
  13. UROKINASE [Concomitant]
     Active Substance: UROKINASE
  14. SPIRONOLACTONE. [Concomitant]
     Active Substance: SPIRONOLACTONE
  15. GRAVOL [Concomitant]
     Active Substance: DIMENHYDRINATE

REACTIONS (6)
  - Oedema peripheral [Unknown]
  - Weight increased [Unknown]
  - Left ventricular failure [Unknown]
  - Right ventricular failure [Unknown]
  - Death [Fatal]
  - Oxygen saturation decreased [Unknown]

NARRATIVE: CASE EVENT DATE: 20160729
